FAERS Safety Report 5908994-X (Version None)
Quarter: 2008Q4

REPORT INFORMATION
  Report Type: 
  Country: None (occurrence: None)
  Receive Date: 20081001
  Receipt Date: 20080915
  Transmission Date: 20090506
  Serious: Yes (Death)
  Sender: FDA-Public Use
  Company Number: 8037426

PATIENT
  Age: 82 Year
  Sex: Male

DRUGS (2)
  1. PREDNISOLONE [Suspect]
     Indication: PEMPHIGOID
     Dosage: 60 MG /D
  2. PREDNISOLONE [Suspect]
     Indication: PEMPHIGOID
     Dosage: 30 MG /D

REACTIONS (5)
  - AORTIC ANEURYSM RUPTURE [None]
  - BACK PAIN [None]
  - FALL [None]
  - GASTRIC ULCER HAEMORRHAGE [None]
  - SHOCK [None]
